FAERS Safety Report 13545467 (Version 1)
Quarter: 2017Q2

REPORT INFORMATION
  Report Type: Spontaneous
  Country: US (occurrence: US)
  Receive Date: 20170515
  Receipt Date: 20170515
  Transmission Date: 20170830
  Serious: No
  Sender: FDA-Public Use
  Company Number: US-PFIZER INC-2017202238

PATIENT
  Age: 70 Year

DRUGS (4)
  1. CIPROFLOXACIN. [Suspect]
     Active Substance: CIPROFLOXACIN
     Dosage: UNK
  2. METRONIDAZOLE. [Suspect]
     Active Substance: METRONIDAZOLE
     Dosage: UNK
  3. CEPHALOSPORIN C [Suspect]
     Active Substance: CEPHALOSPORIN C
     Dosage: UNK
  4. XARELTO [Suspect]
     Active Substance: RIVAROXABAN
     Indication: PULMONARY EMBOLISM
     Dosage: UNK

REACTIONS (4)
  - Blood cholesterol increased [Unknown]
  - Pain in extremity [Unknown]
  - Visual impairment [Unknown]
  - Low density lipoprotein increased [Unknown]
